FAERS Safety Report 9551614 (Version 1)
Quarter: 2013Q3

REPORT INFORMATION
  Report Type: Spontaneous
  Country: US (occurrence: None)
  Receive Date: 20130724
  Receipt Date: 20130724
  Transmission Date: 20140515
  Serious: Yes (Other)
  Sender: FDA-Public Use
  Company Number: PHEH2012US016840

PATIENT
  Age: 58 Year
  Sex: Female

DRUGS (22)
  1. DIOVAN HCT (VALSARTAN, HYDROCHLOROTHIAZIDE) UNKNOWN [Suspect]
  2. BYSTOLIC (NEBIVOLOL HYDROCHLORIDE) [Concomitant]
  3. TORSEMIDE [Concomitant]
  4. KCL (POTASSIUM CHLORIDE) [Concomitant]
  5. MELOXICAM (MELOXICAM) [Concomitant]
  6. ULORIC (FEBUXOSTAT) [Concomitant]
  7. CRESTOR (ROSUVASTATIN CALCIUM) [Concomitant]
  8. VITAMIN D (ERGOCALCIFEROL) [Concomitant]
  9. ZANTAC (RANITIDINE HYDROCHLORIDE) [Concomitant]
  10. LORTAB (HYDROCODONE BITARTRATE, PARACETAMOL) [Concomitant]
  11. METFORMIN (METFORMIN) [Concomitant]
  12. EPIPEN (EPINEPHRINE) [Concomitant]
  13. NITROGLYCERIN (GLYCERYL TRINITRATE) [Concomitant]
  14. REGLAN (METOCLOPRAMIDE HYDROCHLORIDE) [Concomitant]
  15. KLONOPIN (CLONAZEPAM) [Concomitant]
  16. ZYRTEC (CETIRIZINE HYDROCHLORIDE) [Concomitant]
  17. BENADRYL (AMMONIUM CHLORIDE, DIPHENHYDRAMINE HYDROCHLORIDE, MENTHOL, SODIUM CITRATE) [Concomitant]
  18. ASPIRIN (ACETYLSALICYLIC ACID) [Concomitant]
  19. ALBUTEROL (SALBUTAMOL) [Concomitant]
  20. FLUTICASONE PROPIONATE (FLUTICASONE PROPIONATE) [Concomitant]
  21. GLIMEPIRIDE (GLIMEPIRIDE) [Concomitant]
  22. LAMOTRIGINE (LAMOTRIGINE) [Concomitant]

REACTIONS (2)
  - Renal failure [None]
  - Blood pressure increased [None]
